FAERS Safety Report 23391455 (Version 1)
Quarter: 2024Q1

REPORT INFORMATION
  Report Type: Spontaneous
  Country: US (occurrence: US)
  Receive Date: 20240111
  Receipt Date: 20240111
  Transmission Date: 20240410
  Serious: Yes (Death)
  Sender: FDA-Public Use
  Company Number: US-DRL-USA-LIT/USA/23/0032630

PATIENT
  Age: 45 Year
  Sex: Female

DRUGS (6)
  1. PAMIDRONIC ACID [Suspect]
     Active Substance: PAMIDRONIC ACID
     Indication: Hypercalcaemia of malignancy
     Route: 042
  2. PAMIDRONIC ACID [Suspect]
     Active Substance: PAMIDRONIC ACID
     Indication: Parathyroid hormone-related protein increased
  3. PAMIDRONIC ACID [Suspect]
     Active Substance: PAMIDRONIC ACID
     Indication: Adenocarcinoma metastatic
  4. CALCITONIN [Suspect]
     Active Substance: CALCITONIN
     Indication: Hypercalcaemia of malignancy
     Dosage: 200 U
     Route: 030
  5. CALCITONIN [Suspect]
     Active Substance: CALCITONIN
     Indication: Parathyroid hormone-related protein increased
  6. CALCITONIN [Suspect]
     Active Substance: CALCITONIN
     Indication: Adenocarcinoma metastatic

REACTIONS (1)
  - Drug ineffective [Fatal]
